FAERS Safety Report 11196786 (Version 1)
Quarter: 2015Q2

REPORT INFORMATION
  Report Type: Spontaneous
  Country: CH (occurrence: CH)
  Receive Date: 20150617
  Receipt Date: 20150617
  Transmission Date: 20150821
  Serious: Yes (Other)
  Sender: FDA-Public Use
  Company Number: CH-LPDUSPRD-20150438

PATIENT
  Age: 46 Year
  Sex: Female
  Weight: 78 kg

DRUGS (2)
  1. FERINJECT [Suspect]
     Active Substance: FERRIC CARBOXYMALTOSE
     Dosage: 500 MG
     Route: 042
     Dates: start: 20150519, end: 20150526
  2. MEFENAMIC-ACID [Concomitant]
     Active Substance: MEFENAMIC ACID
     Dosage: 500 MG OCCASIONALLY
     Route: 048

REACTIONS (4)
  - Dyspnoea [Unknown]
  - Influenza like illness [Unknown]
  - Asthenia [Unknown]
  - Erythema [Unknown]

NARRATIVE: CASE EVENT DATE: 20150526
